FAERS Safety Report 15151889 (Version 2)
Quarter: 2021Q1

REPORT INFORMATION
  Report Type: Spontaneous
  Country: US (occurrence: US)
  Receive Date: 20180717
  Receipt Date: 20210204
  Transmission Date: 20210419
  Serious: Yes (Other)
  Sender: FDA-Public Use
  Company Number: US-ELI_LILLY_AND_COMPANY-US201807006919

PATIENT
  Age: 63 Year
  Sex: Male

DRUGS (3)
  1. ZYPREXA [Suspect]
     Active Substance: OLANZAPINE
     Indication: SCHIZOPHRENIA
     Dosage: 20 MG, EACH EVENING (AT BEDTIME)
     Route: 065
     Dates: start: 1996
  2. ZYPREXA [Suspect]
     Active Substance: OLANZAPINE
     Indication: ANXIETY
     Dosage: 5 MG, EACH MORNING
     Route: 065
     Dates: start: 1996
  3. ZYPREXA [Suspect]
     Active Substance: OLANZAPINE
     Indication: PRODUCT USED FOR UNKNOWN INDICATION
     Dosage: 2.5 MG, UNKNOWN
     Route: 065

REACTIONS (4)
  - Diabetes mellitus [Unknown]
  - Limb injury [Unknown]
  - Overdose [Unknown]
  - Weight increased [Unknown]

NARRATIVE: CASE EVENT DATE: 1996
